FAERS Safety Report 7932081-2 (Version None)
Quarter: 2011Q4

REPORT INFORMATION
  Report Type: 
  Country: None (occurrence: None)
  Receive Date: 20111121
  Receipt Date: 20111115
  Transmission Date: 20120403
  Serious: Yes (Life-Threatening)
  Sender: FDA-Public Use
  Company Number: RO-ASTRAZENECA-2011SE68958

PATIENT
  Age: 49 Year
  Sex: Female
  Weight: 97 kg

DRUGS (3)
  1. CRESTOR [Suspect]
     Indication: DYSLIPIDAEMIA
     Route: 048
     Dates: start: 20111101, end: 20111101
  2. ENALAPRIL MALEATE [Concomitant]
     Dates: start: 20040401
  3. INDAPAMID [Concomitant]
     Dates: start: 20060701

REACTIONS (1)
  - ANAPHYLACTIC SHOCK [None]
